FAERS Safety Report 4801855-9 (Version None)
Quarter: 2005Q4

REPORT INFORMATION
  Report Type: 
  Country: None (occurrence: None)
  Receive Date: 20051011
  Receipt Date: 20050927
  Transmission Date: 20060501
  Serious: No
  Sender: FDA-Public Use
  Company Number: 217829

PATIENT
  Age: 13 Year
  Sex: Female

DRUGS (1)
  1. SOMATROPIN(SOMATROPIN) POWDER FOR INJECTION [Suspect]
     Indication: TURNER'S SYNDROME
     Dates: start: 19940501, end: 19970301

REACTIONS (6)
  - CONDITION AGGRAVATED [None]
  - HEPATIC ADENOMA [None]
  - HEPATIC LESION [None]
  - HEPATITIS CHRONIC ACTIVE [None]
  - OEDEMA PERIPHERAL [None]
  - SPINAL DEFORMITY [None]
